FAERS Safety Report 4426152-5 (Version None)
Quarter: 2004Q3

REPORT INFORMATION
  Report Type: 
  Country: None (occurrence: None)
  Receive Date: 20040811
  Receipt Date: 20040803
  Transmission Date: 20050211
  Serious: Yes (Hospitalization)
  Sender: FDA-Public Use
  Company Number: US-JNJFOC-20040702564

PATIENT
  Age: 11 Year
  Sex: Male
  Weight: 33.5662 kg

DRUGS (5)
  1. CHILDREN'S MOTRIN [Suspect]
     Indication: MALAISE
     Dosage: 200 MG, 1 IN 8 HOUR, ORAL
     Route: 048
     Dates: start: 20040430, end: 20040504
  2. CHILDREN'S MOTRIN [Suspect]
     Indication: PYREXIA
     Dosage: 200 MG, 1 IN 8 HOUR, ORAL
     Route: 048
     Dates: start: 20040430, end: 20040504
  3. ZITHROMAX [Suspect]
     Indication: MALAISE
     Dates: start: 20040430, end: 20040504
  4. ZITHROMAX [Suspect]
     Indication: PYREXIA
     Dates: start: 20040430, end: 20040504
  5. CLARINEX [Concomitant]

REACTIONS (11)
  - ABDOMINAL PAIN [None]
  - ABDOMINAL PAIN UPPER [None]
  - ANOREXIA [None]
  - CRYING [None]
  - DIARRHOEA [None]
  - DRUG HYPERSENSITIVITY [None]
  - FATIGUE [None]
  - GASTROINTESTINAL DISORDER [None]
  - INFLAMMATION [None]
  - NAUSEA [None]
  - WEIGHT DECREASED [None]
